FAERS Safety Report 19376599 (Version 1)
Quarter: 2021Q2

REPORT INFORMATION
  Report Type: Spontaneous
  Country: US (occurrence: US)
  Receive Date: 20210604
  Receipt Date: 20210604
  Transmission Date: 20210717
  Serious: Yes (Life-Threatening, Hospitalization)
  Sender: FDA-Public Use
  Company Number: US-MYLANLABS-2021M1032395

PATIENT
  Age: 15 Year
  Sex: Female

DRUGS (1)
  1. CLONIDINE. [Suspect]
     Active Substance: CLONIDINE
     Indication: PRODUCT USED FOR UNKNOWN INDICATION
     Dosage: 247 DOSAGE FORM, TOTAL
     Route: 048

REACTIONS (6)
  - Toxicity to various agents [Recovering/Resolving]
  - Seizure [Recovering/Resolving]
  - Posterior reversible encephalopathy syndrome [Recovering/Resolving]
  - Bradycardia [Recovering/Resolving]
  - Intentional overdose [Recovering/Resolving]
  - Hypertension [Recovering/Resolving]
